FAERS Safety Report 4837107-0 (Version None)
Quarter: 2005Q4

REPORT INFORMATION
  Report Type: 
  Country: None (occurrence: None)
  Receive Date: 20051121
  Receipt Date: 20051121
  Transmission Date: 20060501
  Serious: Yes (Hospitalization, Other)
  Sender: FDA-Public Use
  Company Number: None

PATIENT
  Sex: Female
  Weight: 93.2 kg

DRUGS (6)
  1. TEMOZOLOMIDE [Suspect]
     Indication: ASTROCYTOMA
     Dosage: SEE IMAGE
     Dates: start: 20051030, end: 20051103
  2. TEMOZOLOMIDE [Suspect]
     Indication: ASTROCYTOMA
     Dosage: SEE IMAGE
     Dates: start: 20051030
  3. RADIATION [Suspect]
     Dosage: SEE IMAGE
  4. COUMADIN [Concomitant]
  5. CARBAMAZEPINE [Concomitant]
  6. PRAVASTATIN [Concomitant]

REACTIONS (2)
  - CONFUSIONAL STATE [None]
  - HEMIPARESIS [None]
